FAERS Safety Report 12823470 (Version 1)
Quarter: 2016Q4

REPORT INFORMATION
  Report Type: Spontaneous
  Country: US (occurrence: US)
  Receive Date: 20161007
  Receipt Date: 20161007
  Transmission Date: 20170207
  Serious: Yes (Hospitalization, Other)
  Sender: FDA-Public Use
  Company Number: US-VIIV HEALTHCARE LIMITED-US2016146456

PATIENT
  Age: 46 Year
  Sex: Male

DRUGS (14)
  1. ISOSORBIDE. [Concomitant]
     Active Substance: ISOSORBIDE
  2. LABETALOL [Concomitant]
     Active Substance: LABETALOL\LABETALOL HYDROCHLORIDE
  3. MIDODRINE TABLET (MIDODRINE) [Concomitant]
  4. TRUVADA [Concomitant]
     Active Substance: EMTRICITABINE\TENOFOVIR DISOPROXIL FUMARATE
  5. FLUDROCORTISONE [Concomitant]
     Active Substance: FLUDROCORTISONE
  6. NIZATIDINE. [Concomitant]
     Active Substance: NIZATIDINE
  7. SENSIPAR [Concomitant]
     Active Substance: CINACALCET HYDROCHLORIDE
  8. RENVELA [Concomitant]
     Active Substance: SEVELAMER CARBONATE
  9. TIZANIDINE. [Concomitant]
     Active Substance: TIZANIDINE
  10. LISINOPRIL. [Concomitant]
     Active Substance: LISINOPRIL
  11. METOPROLOL. [Concomitant]
     Active Substance: METOPROLOL
  12. LEXIVA [Suspect]
     Active Substance: FOSAMPRENAVIR CALCIUM
     Indication: HIV INFECTION
     Dosage: 700 MG, BID
     Route: 048
     Dates: start: 2011, end: 20160909
  13. ZOFRAN [Concomitant]
     Active Substance: ONDANSETRON HYDROCHLORIDE
  14. MEGESTROL [Concomitant]
     Active Substance: MEGESTROL

REACTIONS (1)
  - Renal transplant [Unknown]

NARRATIVE: CASE EVENT DATE: 20160910
